FAERS Safety Report 7240211-3 (Version None)
Quarter: 2011Q1

REPORT INFORMATION
  Report Type: 
  Country: None (occurrence: None)
  Receive Date: 20110124
  Receipt Date: 20110113
  Transmission Date: 20110831
  Serious: Yes (Hospitalization)
  Sender: FDA-Public Use
  Company Number: US-JNJFOC-20101107775

PATIENT
  Sex: Female

DRUGS (14)
  1. VITAMINS NOS [Concomitant]
     Indication: NUTRITIONAL SUPPORT
  2. DEXAMETHASONE [Concomitant]
     Route: 065
  3. FISH OIL [Concomitant]
     Indication: NUTRITIONAL SUPPORT
     Route: 065
  4. CALCIUM AND MAGNESIUM [Concomitant]
     Indication: NUTRITIONAL SUPPORT
     Route: 065
  5. DEXAMETHASONE [Concomitant]
     Indication: PREMEDICATION
     Route: 065
  6. DEXAMETHASONE [Concomitant]
     Route: 065
  7. DOXIL [Suspect]
     Indication: OVARIAN CANCER
     Route: 042
  8. NICOTINAM. W/PYRIDOXI. HCL/RIBOFL./THIAM. HCL [Concomitant]
     Route: 065
  9. DOXIL [Suspect]
     Route: 042
  10. DOXIL [Suspect]
     Route: 042
  11. DOXIL [Suspect]
     Route: 042
  12. ZOLPIDEM [Concomitant]
     Indication: INSOMNIA
  13. MAGNESIUM [Concomitant]
     Indication: NUTRITIONAL SUPPORT
     Route: 065
  14. NICOTINAM. W/PYRIDOXI. HCL/RIBOFL./THIAM. HCL [Concomitant]
     Indication: NUTRITIONAL SUPPORT
     Route: 065

REACTIONS (1)
  - SMALL INTESTINAL OBSTRUCTION [None]
